FAERS Safety Report 12964586 (Version 3)
Quarter: 2017Q2

REPORT INFORMATION
  Report Type: Spontaneous
  Country: US (occurrence: US)
  Receive Date: 20161122
  Receipt Date: 20170526
  Transmission Date: 20170830
  Serious: No
  Sender: FDA-Public Use
  Company Number: US-PFIZER INC-2016499294

PATIENT
  Age: 54 Year
  Sex: Male
  Weight: 90.7 kg

DRUGS (26)
  1. LYRICA [Suspect]
     Active Substance: PREGABALIN
     Dosage: UNK
  2. MONOPRIL [Concomitant]
     Active Substance: FOSINOPRIL SODIUM
     Dosage: 10 MG, UNK
     Route: 048
  3. CLARITIN [Concomitant]
     Active Substance: LORATADINE
     Dosage: 10 MG, UNK
     Route: 048
  4. ALAVERT ALLERGY [Concomitant]
     Active Substance: LORATADINE
     Dosage: 10 MG, UNK
     Route: 048
  5. FOSINOPRIL SODIUM. [Concomitant]
     Active Substance: FOSINOPRIL SODIUM
     Dosage: 10 MG, 1X/DAY
  6. LEXAPRO [Concomitant]
     Active Substance: ESCITALOPRAM OXALATE
     Dosage: 10 MG, UNK
     Route: 048
  7. JANUVIA [Concomitant]
     Active Substance: SITAGLIPTIN PHOSPHATE
     Indication: DIABETES MELLITUS
     Dosage: 100 MG, UNK
     Route: 048
  8. TRAMADOL. [Concomitant]
     Active Substance: TRAMADOL
     Indication: PAIN
     Dosage: 50 MG, 3X/DAY
  9. ECOTRIN [Concomitant]
     Active Substance: ASPIRIN
     Dosage: 325 MG, UNK
     Route: 048
  10. PRAVACHOL [Concomitant]
     Active Substance: PRAVASTATIN SODIUM
     Dosage: 40 MG, UNK
     Route: 048
  11. METFORMIN [Concomitant]
     Active Substance: METFORMIN HYDROCHLORIDE
     Dosage: 100 MG, 2X/DAY
  12. PRAVASTATIN. [Concomitant]
     Active Substance: PRAVASTATIN
     Dosage: 40 MG, 1X/DAY
  13. ESCITALOPRAM [Concomitant]
     Active Substance: ESCITALOPRAM OXALATE
     Dosage: 10 MG, 1X/DAY
  14. LYRICA [Suspect]
     Active Substance: PREGABALIN
     Indication: DIABETES MELLITUS
     Dosage: 150 MG, 3X/DAY
     Route: 048
  15. CYMBALTA [Concomitant]
     Active Substance: DULOXETINE HYDROCHLORIDE
     Dosage: 60 MG, UNK
     Route: 048
  16. AMARYL [Concomitant]
     Active Substance: GLIMEPIRIDE
     Dosage: 4 MG, UNK
     Route: 048
  17. MORPHINE [Concomitant]
     Active Substance: MORPHINE
     Dosage: 15 MG, UNK
     Route: 048
  18. NEURONTIN [Concomitant]
     Active Substance: GABAPENTIN
     Dosage: 300 MG, UNK
     Route: 048
  19. GLUCOPHAGE [Concomitant]
     Active Substance: METFORMIN HYDROCHLORIDE
     Dosage: 1000 MG, UNK
     Route: 048
  20. ZANTAC [Concomitant]
     Active Substance: RANITIDINE HYDROCHLORIDE
     Dosage: 150 MG, UNK
     Route: 048
  21. TADALAFIL [Concomitant]
     Active Substance: TADALAFIL
     Dosage: 20 MG, UNK
     Route: 048
  22. DESYREL [Concomitant]
     Active Substance: TRAZODONE HYDROCHLORIDE
     Dosage: 150 MG, UNK
     Route: 048
  23. GLIMEPIRIDE. [Concomitant]
     Active Substance: GLIMEPIRIDE
     Dosage: 2 MG, 2X/DAY
  24. ULTRAM [Concomitant]
     Active Substance: TRAMADOL HYDROCHLORIDE
     Dosage: 50 MG, UNK
     Route: 048
  25. OXYGEN. [Concomitant]
     Active Substance: OXYGEN
     Dosage: UNK
  26. GABAPENTIN. [Concomitant]
     Active Substance: GABAPENTIN
     Indication: PAIN
     Dosage: 300 MG, 3X/DAY

REACTIONS (3)
  - Pain [Not Recovered/Not Resolved]
  - Product use in unapproved indication [Unknown]
  - Pain in extremity [Unknown]
